FAERS Safety Report 18332655 (Version 6)
Quarter: 2022Q1

REPORT INFORMATION
  Report Type: Spontaneous
  Country: US (occurrence: US)
  Receive Date: 20200930
  Receipt Date: 20220210
  Transmission Date: 20220423
  Serious: No
  Sender: FDA-Public Use
  Company Number: US-SA-2020SA266002

PATIENT
  Age: 39 Year
  Sex: Female

DRUGS (2)
  1. DUPIXENT [Suspect]
     Active Substance: DUPILUMAB
     Indication: Dermatitis atopic
     Dosage: 600 MG, 1X
     Route: 058
     Dates: start: 202007, end: 202007
  2. DUPIXENT [Suspect]
     Active Substance: DUPILUMAB
     Dosage: 300 MG, QOW
     Route: 058
     Dates: start: 2020, end: 20210715

REACTIONS (11)
  - Eye disorder [Unknown]
  - Hot flush [Unknown]
  - Menstruation irregular [Unknown]
  - Eye pain [Unknown]
  - Pruritus [Unknown]
  - Headache [Unknown]
  - Eye swelling [Unknown]
  - Eye pruritus [Unknown]
  - Injection site mass [Unknown]
  - Injection site reaction [Unknown]
  - Exposure during pregnancy [Unknown]

NARRATIVE: CASE EVENT DATE: 20200101
